FAERS Safety Report 25262848 (Version 2)
Quarter: 2025Q2

REPORT INFORMATION
  Report Type: Report from Study
  Country: CA (occurrence: CA)
  Receive Date: 20250502
  Receipt Date: 20250512
  Transmission Date: 20250717
  Serious: Yes (Hospitalization, Other)
  Sender: TAKEDA
  Company Number: CA-TAKEDA-2025TUS040632

PATIENT
  Sex: Male

DRUGS (1)
  1. VEDOLIZUMAB [Suspect]
     Active Substance: VEDOLIZUMAB
     Indication: Crohn^s disease

REACTIONS (4)
  - Pneumothorax [Unknown]
  - Pulmonary bulla [Unknown]
  - Acne [Recovering/Resolving]
  - Localised infection [Recovering/Resolving]
